FAERS Safety Report 4329776-9 (Version None)
Quarter: 2004Q1

REPORT INFORMATION
  Report Type: 
  Country: None (occurrence: None)
  Receive Date: 20040329
  Receipt Date: 20040113
  Transmission Date: 20041129
  Serious: No
  Sender: FDA-Public Use
  Company Number: RS004142-CDN

PATIENT
  Age: 51 Year
  Sex: Female

DRUGS (13)
  1. RABEPRAZOLE SODIUM [Suspect]
     Dosage: 20 MG, 1 IN 1 D, ORAL
     Route: 048
  2. VIOXX [Suspect]
     Dosage: 50 MG, 2 IN 1 D; UNKNOWN
     Route: 065
  3. ALLOPURINOL [Concomitant]
  4. CODEINE CONTIN [Concomitant]
  5. DIVALPROEX SODIUM [Concomitant]
  6. EFFEXOR XR [Concomitant]
  7. HUMALOG [Concomitant]
  8. IBUPROFEN [Concomitant]
  9. LEVOTHYROXINE SODIUM [Concomitant]
  10. INSULIN PH (INSULIN) [Concomitant]
  11. SALMON OIL (FISH OIL) [Concomitant]
  12. TYLENOL WITH CODEINE NO. 3 (PANADEINE CO) [Concomitant]
  13. ..... [Concomitant]

REACTIONS (11)
  - BLOOD GLUCOSE INCREASED [None]
  - CONFUSIONAL STATE [None]
  - DISTURBANCE IN ATTENTION [None]
  - DYSGEUSIA [None]
  - HYPERCHLORHYDRIA [None]
  - INSOMNIA [None]
  - MUSCLE RIGIDITY [None]
  - MYALGIA [None]
  - PARAESTHESIA [None]
  - PRURITUS [None]
  - SOMNOLENCE [None]
